FAERS Safety Report 12862461 (Version 1)
Quarter: 2016Q4

REPORT INFORMATION
  Report Type: Spontaneous
  Country: US (occurrence: US)
  Receive Date: 20161018
  Receipt Date: 20161018
  Transmission Date: 20170207
  Serious: Yes (Other)
  Sender: FDA-Public Use
  Company Number: None

PATIENT
  Age: 21 Year
  Sex: Female
  Weight: 79.38 kg

DRUGS (1)
  1. LEVOTHYROXINE. [Suspect]
     Active Substance: LEVOTHYROXINE

REACTIONS (5)
  - Fatigue [None]
  - Weight increased [None]
  - Feeling cold [None]
  - Thyroid function test abnormal [None]
  - Product substitution issue [None]

NARRATIVE: CASE EVENT DATE: 20150826
